FAERS Safety Report 9223474 (Version 2)
Quarter: 2013Q2

REPORT INFORMATION
  Report Type: Spontaneous
  Country: US (occurrence: US)
  Receive Date: 20130410
  Receipt Date: 20130523
  Transmission Date: 20140414
  Serious: Yes (Death, Hospitalization)
  Sender: FDA-Public Use
  Company Number: US-INCYTE CORPORATION-2013IN000684

PATIENT
  Age: 80 Year
  Sex: Female

DRUGS (1)
  1. JAKAFI [Suspect]
     Indication: BREAST CANCER
     Dosage: 15 MG, BID
     Route: 048
     Dates: start: 20120125

REACTIONS (2)
  - Death [Fatal]
  - Hospitalisation [Unknown]
